FAERS Safety Report 17060347 (Version 11)
Quarter: 2020Q4

REPORT INFORMATION
  Report Type: Report from Study
  Country: AR (occurrence: AR)
  Receive Date: 20191121
  Receipt Date: 20201223
  Transmission Date: 20210113
  Serious: Yes (Hospitalization, Other)
  Sender: FDA-Public Use
  Company Number: PHHY2017AR056674

PATIENT
  Age: 66 Year
  Sex: Female

DRUGS (7)
  1. COSENTYX [Suspect]
     Active Substance: SECUKINUMAB
     Dosage: 300 MG, UNK
     Route: 065
     Dates: start: 20180221
  2. COSENTYX [Suspect]
     Active Substance: SECUKINUMAB
     Indication: PSORIATIC ARTHROPATHY
     Dosage: 300 MG, UNKNOWN
     Route: 065
     Dates: start: 201704
  3. COSENTYX [Suspect]
     Active Substance: SECUKINUMAB
     Indication: PSORIASIS
     Dosage: 150 MG, EVERY 15 DAYS
     Route: 065
     Dates: start: 201512, end: 201612
  4. COSENTYX [Suspect]
     Active Substance: SECUKINUMAB
     Dosage: 300 MG, QMO
     Route: 065
     Dates: start: 20170426
  5. METHOTREXATE. [Concomitant]
     Active Substance: METHOTREXATE
     Indication: PRODUCT USED FOR UNKNOWN INDICATION
     Dosage: UNK
     Route: 065
  6. COSENTYX [Suspect]
     Active Substance: SECUKINUMAB
     Dosage: 300 MG, UNK (2 INJECTIONS OF 150 MG APPLIED SAME DAY)
     Route: 065
     Dates: start: 20180721
  7. METFORMIN [Concomitant]
     Active Substance: METFORMIN HYDROCHLORIDE
     Indication: PRODUCT USED FOR UNKNOWN INDICATION
     Dosage: 850 MG, UNK(APPROXIMATELY 5 YEARS AGO)
     Route: 065

REACTIONS (37)
  - Gait inability [Not Recovered/Not Resolved]
  - Joint swelling [Not Recovered/Not Resolved]
  - Muscle spasms [Not Recovered/Not Resolved]
  - Crying [Unknown]
  - Injury [Not Recovered/Not Resolved]
  - Asthenia [Unknown]
  - Abdominal pain [Unknown]
  - Fatigue [Not Recovered/Not Resolved]
  - Anxiety [Unknown]
  - Psoriasis [Not Recovered/Not Resolved]
  - Drug ineffective [Not Recovered/Not Resolved]
  - Psoriatic arthropathy [Not Recovered/Not Resolved]
  - Tachycardia [Not Recovered/Not Resolved]
  - Pain in extremity [Unknown]
  - Discomfort [Unknown]
  - Depressed mood [Unknown]
  - Emotional distress [Not Recovered/Not Resolved]
  - Sleep disorder [Unknown]
  - Pyrexia [Not Recovered/Not Resolved]
  - Product prescribing error [Unknown]
  - Pruritus [Not Recovered/Not Resolved]
  - Peripheral swelling [Not Recovered/Not Resolved]
  - Pain [Not Recovered/Not Resolved]
  - Head discomfort [Unknown]
  - Ligament sprain [Unknown]
  - Energy increased [Unknown]
  - Arthralgia [Not Recovered/Not Resolved]
  - Arthritis [Recovering/Resolving]
  - Erythema [Not Recovered/Not Resolved]
  - Joint stiffness [Not Recovered/Not Resolved]
  - Headache [Not Recovered/Not Resolved]
  - Sensory disturbance [Unknown]
  - Irritable bowel syndrome [Unknown]
  - Hypertension [Unknown]
  - Pyrexia [Recovered/Resolved]
  - Agitation [Unknown]
  - Diarrhoea [Recovering/Resolving]

NARRATIVE: CASE EVENT DATE: 201702
